FAERS Safety Report 5878995-9 (Version None)
Quarter: 2008Q3

REPORT INFORMATION
  Report Type: 
  Country: None (occurrence: None)
  Receive Date: 20080912
  Receipt Date: 20080903
  Transmission Date: 20090109
  Serious: Yes (Death, Other)
  Sender: FDA-Public Use
  Company Number: JP-BRISTOL-MYERS SQUIBB COMPANY-14321921

PATIENT
  Age: 9 Year
  Sex: Male

DRUGS (6)
  1. ENDOXAN [Suspect]
     Indication: LYMPHOMA
     Dosage: RECEIVED OVER A ONE-HOUR PERIOD FROM 10:07 A.M. TO 11:17 A.M.
     Route: 041
     Dates: start: 20080721, end: 20080721
  2. KYTRIL [Suspect]
     Indication: PROPHYLAXIS OF NAUSEA AND VOMITING
     Route: 042
     Dates: start: 20080721, end: 20080721
  3. KYTRIL [Suspect]
     Indication: LYMPHOMA
     Route: 042
     Dates: start: 20080721, end: 20080721
  4. ONCOVIN [Suspect]
     Indication: LYMPHOMA
     Route: 042
     Dates: start: 20080721, end: 20080721
  5. DAUNOMYCIN [Suspect]
     Indication: LYMPHOMA
     Dosage: 36MG OVER A ONE HOUR PERIOD.
     Route: 041
     Dates: start: 20080721, end: 20080721
  6. PREDONINE [Concomitant]
     Indication: LYMPHOMA
     Dosage: SLOW INJECTION; THERAPY DATES: 14JUL08-16JUL08 AND 17JUL08-21JUL08.
     Route: 042
     Dates: start: 20080714, end: 20080721

REACTIONS (4)
  - ANAPHYLACTIC SHOCK [None]
  - BRADYCARDIA [None]
  - PERICARDIAL EFFUSION [None]
  - SHOCK [None]
